FAERS Safety Report 8053899-4 (Version None)
Quarter: 2012Q1

REPORT INFORMATION
  Report Type: 
  Country: None (occurrence: None)
  Receive Date: 20120118
  Receipt Date: 20120106
  Transmission Date: 20120608
  Serious: Yes (Other)
  Sender: FDA-Public Use
  Company Number: JP-ELI_LILLY_AND_COMPANY-JP201106001115

PATIENT
  Age: 67 Year
  Sex: Female
  Weight: 34 kg

DRUGS (13)
  1. MAGNESIUM SULFATE [Concomitant]
     Indication: CONSTIPATION
     Dosage: 500 MG, TID
     Route: 048
     Dates: start: 20100801
  2. TELEMINSOFT [Concomitant]
     Indication: CONSTIPATION
     Dosage: UNK
     Route: 054
     Dates: start: 20100801
  3. PRIMPERAN TAB [Concomitant]
     Dosage: UNK
     Route: 042
     Dates: start: 20110425
  4. GEMZAR [Suspect]
     Indication: OVARIAN CANCER RECURRENT
     Dosage: 1000 MG, OTHER
     Route: 042
     Dates: start: 20110519, end: 20110519
  5. FENTANYL CITRATE [Concomitant]
     Indication: CANCER PAIN
     Dosage: UNK
     Route: 062
     Dates: start: 20110523
  6. TATHION [Concomitant]
     Dosage: UNK
     Route: 042
     Dates: start: 20110425
  7. LASIX [Concomitant]
     Indication: PROPHYLAXIS
     Dosage: 40 MG, QD
     Route: 048
     Dates: start: 20100801
  8. PANTOSIN [Concomitant]
     Indication: ABDOMINAL DISTENSION
     Dosage: UNK
     Route: 042
     Dates: start: 20110425
  9. MORPHINE HYDROCHLORIDE [Concomitant]
     Indication: CANCER PAIN
     Dosage: 10 MG, UNK
     Route: 054
     Dates: start: 20110523
  10. ALOXI [Concomitant]
     Dosage: UNK
     Route: 042
     Dates: start: 20110519, end: 20110519
  11. FAMOTIDINE [Concomitant]
     Indication: ABDOMINAL PAIN UPPER
     Dosage: 10 MG, BID
     Route: 048
     Dates: start: 20100801
  12. DECADRON [Concomitant]
     Dosage: UNK
     Route: 042
     Dates: start: 20110519, end: 20110519
  13. ALDACTONE [Concomitant]
     Indication: PROPHYLAXIS
     Dosage: 50 MG, QD
     Route: 048
     Dates: start: 20100801

REACTIONS (2)
  - CHOLECYSTITIS [None]
  - INTERSTITIAL LUNG DISEASE [None]
